FAERS Safety Report 25874916 (Version 2)
Quarter: 2025Q4

REPORT INFORMATION
  Report Type: Report from Study
  Country: US (occurrence: US)
  Receive Date: 20251002
  Receipt Date: 20251017
  Transmission Date: 20260117
  Serious: Yes (Hospitalization)
  Sender: BAUSCH AND LOMB
  Company Number: US-BAUSCHBL-2025BNL029104

PATIENT
  Age: 49 Year
  Sex: Male

DRUGS (4)
  1. XIIDRA [Suspect]
     Active Substance: LIFITEGRAST
     Indication: Product used for unknown indication
     Dosage: INSTILL 1 DROP INTO BOTH EYES BY OPHTHALMIC ROUTE 2 TIMES PER DAY APPROXIMATELY 12 HOURS APART
     Route: 047
     Dates: start: 20241126, end: 20250409
  2. ROSUVASTATIN [Concomitant]
     Active Substance: ROSUVASTATIN
     Indication: Product used for unknown indication
  3. AMLODIPINE [Concomitant]
     Active Substance: AMLODIPINE BESYLATE
     Indication: Product used for unknown indication
  4. LISINOPRIL [Concomitant]
     Active Substance: LISINOPRIL
     Indication: Product used for unknown indication

REACTIONS (2)
  - Eye pain [Recovered/Resolved]
  - Exophthalmos [Recovered/Resolved]

NARRATIVE: CASE EVENT DATE: 20250101
